FAERS Safety Report 9347748 (Version 1)
Quarter: 2013Q2

REPORT INFORMATION
  Report Type: Spontaneous
  Country: US (occurrence: None)
  Receive Date: 20130612
  Receipt Date: 20130612
  Transmission Date: 20140414
  Serious: Yes (Death, Life-Threatening, Other)
  Sender: FDA-Public Use
  Company Number: None

PATIENT
  Sex: 0

DRUGS (14)
  1. CIMZIA [Suspect]
     Indication: RHEUMATOID ARTHRITIS
     Dosage: 400 MG DAILY SQ
     Route: 058
     Dates: start: 20130101, end: 20130525
  2. CALCIUM-MAGNESIUM-ZINC [Concomitant]
  3. CELEBREX [Concomitant]
  4. FLEXERIL [Concomitant]
  5. GLIMEPIRIDE [Suspect]
  6. GLUCOPHAGE [Concomitant]
  7. KLOR CON M [Concomitant]
  8. LORAZEPAM [Concomitant]
  9. LORTAB [Concomitant]
  10. MEDROL DOSEPAK [Concomitant]
  11. PRILOSEC [Concomitant]
  12. IRON [Concomitant]
  13. VITAMIN B12 [Concomitant]
  14. SYNTHROID [Concomitant]

REACTIONS (14)
  - Acute myocardial infarction [None]
  - Coronary artery occlusion [None]
  - Renal failure acute [None]
  - Respiratory failure [None]
  - Liver injury [None]
  - Klebsiella test positive [None]
  - Streptococcus test positive [None]
  - Haemorrhagic anaemia [None]
  - Sepsis [None]
  - Hepatic steatosis [None]
  - Hepatic ischaemia [None]
  - Hepatitis [None]
  - Ventricular tachycardia [None]
  - Deep vein thrombosis [None]
